FAERS Safety Report 4847731-7 (Version None)
Quarter: 2005Q4

REPORT INFORMATION
  Report Type: 
  Country: None (occurrence: None)
  Receive Date: 20051205
  Receipt Date: 20051123
  Transmission Date: 20060501
  Serious: Yes (Hospitalization)
  Sender: FDA-Public Use
  Company Number: 2005RL000188

PATIENT
  Age: 78 Year
  Sex: Female

DRUGS (10)
  1. PROPAFENONE HCL [Suspect]
     Indication: ARRHYTHMIA
     Dosage: 2 DF;QD;PO
     Route: 048
     Dates: start: 20050701, end: 20050830
  2. PROPAFENONE HCL [Suspect]
     Indication: PAROXYSMAL ARRHYTHMIA
     Dosage: 2 DF;QD;PO
     Route: 048
     Dates: start: 20050701, end: 20050830
  3. FLUINDIONE [Concomitant]
  4. TRIMETAZIDINE [Concomitant]
  5. FUROSEMIDE [Concomitant]
  6. PRAZEPAM [Concomitant]
  7. PROPRANOLOL [Concomitant]
  8. MACROGOL [Concomitant]
  9. CRATAEGUS [Concomitant]
  10. PARACETAMOL [Concomitant]

REACTIONS (4)
  - BLOOD PRESSURE INCREASED [None]
  - CARDIAC FAILURE [None]
  - CONDITION AGGRAVATED [None]
  - ELECTROCARDIOGRAM ABNORMAL [None]
